FAERS Safety Report 8832369 (Version 1)
Quarter: 2012Q4

REPORT INFORMATION
  Report Type: 
  Country: IT (occurrence: IT)
  Receive Date: 20121009
  Receipt Date: 20121009
  Transmission Date: 20130627
  Serious: Yes (Hospitalization)
  Sender: FDA-Public Use
  Company Number: IT-TEVA-362427ISR

PATIENT
  Age: 76 Year
  Sex: Male

DRUGS (5)
  1. TICLOPIDINE [Suspect]
     Indication: MYOCARDIAL ISCHAEMIA
     Dosage: 500 Milligram Daily;
     Route: 048
     Dates: start: 20120101, end: 20120925
  2. ACEDIUR [Concomitant]
     Indication: HYPERTENSION
     Route: 048
  3. ACEDIUR [Concomitant]
     Route: 048
  4. CRESTOR [Concomitant]
     Indication: HYPERCHOLESTEROLAEMIA
     Route: 048
  5. FINASTERIDE [Concomitant]

REACTIONS (2)
  - Chest pain [Recovered/Resolved]
  - Bronchial haemorrhage [Recovered/Resolved]
